FAERS Safety Report 19511351 (Version 1)
Quarter: 2021Q3

REPORT INFORMATION
  Report Type: Spontaneous
  Country: US (occurrence: US)
  Receive Date: 20210709
  Receipt Date: 20210709
  Transmission Date: 20211014
  Serious: Yes (Hospitalization)
  Sender: FDA-Public Use
  Company Number: None

PATIENT
  Age: 75 Year
  Sex: Female
  Weight: 82 kg

DRUGS (3)
  1. CASIRIVIMAB 600 MG + IMDEVIMAB 600 MG [Suspect]
     Active Substance: CASIRIVIMAB\IMDEVIMAB
     Dosage: ?          OTHER FREQUENCY:ONCE;?
     Route: 042
  2. ALBUTEROL 2.5 MG/3 ML INHALATION [Concomitant]
     Dates: start: 20210707, end: 20210707
  3. DEXAMETHASONE 10 MG IV [Concomitant]
     Dates: start: 20210707, end: 20210707

REACTIONS (1)
  - Hospitalisation [None]

NARRATIVE: CASE EVENT DATE: 20210707
